FAERS Safety Report 20887325 (Version 2)
Quarter: 2022Q3

REPORT INFORMATION
  Report Type: Report from Study
  Country: BE (occurrence: BE)
  Receive Date: 20220528
  Receipt Date: 20220731
  Transmission Date: 20221027
  Serious: Yes (Other)
  Sender: FDA-Public Use
  Company Number: BE-NOVARTISPH-NVSC2022BE119867

PATIENT
  Sex: Female

DRUGS (7)
  1. KISQALI [Suspect]
     Active Substance: RIBOCICLIB
     Indication: Breast cancer
     Dosage: UNK
     Route: 065
     Dates: start: 20170628, end: 201709
  2. KISQALI [Suspect]
     Active Substance: RIBOCICLIB
     Indication: Metastases to bone
     Dosage: 400 MG
     Route: 065
     Dates: start: 201709
  3. FEMARA [Concomitant]
     Active Substance: LETROZOLE
     Indication: Breast cancer
     Dosage: UNK
     Route: 065
     Dates: start: 20170628
  4. FEMARA [Concomitant]
     Active Substance: LETROZOLE
     Indication: Metastases to bone
  5. XGEVA [Concomitant]
     Active Substance: DENOSUMAB
     Indication: Metastases to bone
     Dosage: UNK
     Route: 065
     Dates: start: 201706
  6. CALCIUM [Concomitant]
     Active Substance: CALCIUM
     Indication: Metastases to bone
     Dosage: UNK
     Route: 065
     Dates: start: 201706
  7. VITAMIN D [Concomitant]
     Active Substance: VITAMIN D NOS
     Indication: Metastases to bone
     Dosage: UNK
     Route: 065
     Dates: start: 201706

REACTIONS (8)
  - Sciatica [Unknown]
  - Motor dysfunction [Unknown]
  - Sensory loss [Unknown]
  - Radiculopathy [Unknown]
  - Neutropenia [Unknown]
  - Metastases to lymph nodes [Unknown]
  - Metastases to lung [Unknown]
  - Metastases to spine [Unknown]

NARRATIVE: CASE EVENT DATE: 20170912
